FAERS Safety Report 15884111 (Version 8)
Quarter: 2019Q2

REPORT INFORMATION
  Report Type: Spontaneous
  Country: JP (occurrence: JP)
  Receive Date: 20190129
  Receipt Date: 20190517
  Transmission Date: 20190711
  Serious: Yes (Death, Life-Threatening, Hospitalization, Other)
  Sender: FDA-Public Use
  Company Number: JP-ASTRAZENECA-2019SE16451

PATIENT
  Age: 67 Year
  Sex: Male
  Weight: 75 kg

DRUGS (1)
  1. TAGRISSO [Suspect]
     Active Substance: OSIMERTINIB
     Indication: NON-SMALL CELL LUNG CANCER
     Route: 048
     Dates: start: 20181205, end: 20190119

REACTIONS (19)
  - Oxygen saturation decreased [Not Recovered/Not Resolved]
  - Ventricular tachycardia [Unknown]
  - Pneumothorax [Fatal]
  - Metastases to lymph nodes [Unknown]
  - Haemodynamic instability [Unknown]
  - Disseminated intravascular coagulation [Not Recovered/Not Resolved]
  - Cardiovascular disorder [Not Recovered/Not Resolved]
  - Peripheral circulatory failure [Unknown]
  - Dehydration [Unknown]
  - Blood pressure decreased [Unknown]
  - Malnutrition [Unknown]
  - Pleural effusion [Unknown]
  - Cardiac arrest [Not Recovered/Not Resolved]
  - Malignant neoplasm progression [Unknown]
  - Metastases to lung [Unknown]
  - Interstitial lung disease [Recovering/Resolving]
  - Ventricular fibrillation [Not Recovered/Not Resolved]
  - Gastritis [Unknown]
  - Atrial fibrillation [Unknown]

NARRATIVE: CASE EVENT DATE: 20181228
